FAERS Safety Report 20648939 (Version 1)
Quarter: 2022Q1

REPORT INFORMATION
  Report Type: Spontaneous
  Country: US (occurrence: None)
  Receive Date: 20220329
  Receipt Date: 20220329
  Transmission Date: 20220423
  Serious: Yes (Disabling)
  Sender: FDA-Public Use
  Company Number: None

PATIENT
  Age: 56 Year
  Sex: Male
  Weight: 91.35 kg

DRUGS (1)
  1. BELBUCA [Suspect]
     Active Substance: BUPRENORPHINE HYDROCHLORIDE
     Indication: Pain
     Dosage: OTHER QUANTITY : 1 FILM;?FREQUENCY : TWICE A DAY;?OTHER ROUTE : APPLIED TO INSIDE OF CHEEK;?
     Route: 050
     Dates: start: 20190822

REACTIONS (2)
  - Toothache [None]
  - Pain in jaw [None]

NARRATIVE: CASE EVENT DATE: 20220326
